FAERS Safety Report 18004505 (Version 1)
Quarter: 2020Q3

REPORT INFORMATION
  Report Type: Spontaneous
  Country: FR (occurrence: FR)
  Receive Date: 20200709
  Receipt Date: 20200709
  Transmission Date: 20201103
  Serious: Yes (Life-Threatening, Hospitalization)
  Sender: FDA-Public Use
  Company Number: NVSC2020FR190976

PATIENT
  Age: 57 Year
  Sex: Female
  Weight: 76 kg

DRUGS (7)
  1. METHYLPREDNISOLONE. [Suspect]
     Active Substance: METHYLPREDNISOLONE
     Indication: CHEMOTHERAPY SIDE EFFECT PROPHYLAXIS
     Dosage: 120 MG (1 TOTAL)
     Route: 042
     Dates: start: 20200519
  2. AVASTIN [Suspect]
     Active Substance: BEVACIZUMAB
     Indication: CERVIX CARCINOMA
     Dosage: 575 MG 1 TOTAL CURE CHIMIOTH?RAPIE
     Route: 042
     Dates: start: 20200519
  3. CARBOPLATINE TEVA [Suspect]
     Active Substance: CARBOPLATIN
     Indication: CERVIX CARCINOMA
     Dosage: 590 MG 1 TOTAL CURE DE CHIMIOTH?RAPIE
     Route: 042
     Dates: start: 20200519
  4. PACLITAXEL. [Suspect]
     Active Substance: PACLITAXEL
     Indication: CERVIX CARCINOMA
     Dosage: 324 MG 1 TOTAL CURE CHIMIOTH?RAPIE
     Route: 042
     Dates: start: 20200519
  5. ONDANSETRON [Suspect]
     Active Substance: ONDANSETRON
     Indication: CHEMOTHERAPY SIDE EFFECT PROPHYLAXIS
     Dosage: 8 MG (1 TOTAL)
     Route: 042
     Dates: start: 20200519
  6. CETIRIZINE [Suspect]
     Active Substance: CETIRIZINE HYDROCHLORIDE
     Indication: CHEMOTHERAPY SIDE EFFECT PROPHYLAXIS
     Dosage: 10 MG (1 TOTAL)
     Route: 048
     Dates: start: 20200519
  7. EMEND [Suspect]
     Active Substance: APREPITANT
     Indication: CHEMOTHERAPY SIDE EFFECT PROPHYLAXIS
     Dosage: 125 MG (1 TOTAL)
     Route: 048
     Dates: start: 20200519

REACTIONS (4)
  - Erythema [Recovered/Resolved]
  - Feeling hot [Recovered/Resolved]
  - Malaise [Recovered/Resolved]
  - Hypotension [Recovered/Resolved]

NARRATIVE: CASE EVENT DATE: 20200519
